FAERS Safety Report 6589936-3 (Version None)
Quarter: 2010Q1

REPORT INFORMATION
  Report Type: 
  Country: None (occurrence: None)
  Receive Date: 20100212
  Receipt Date: 20100202
  Transmission Date: 20100710
  Serious: Yes (Other)
  Sender: FDA-Public Use
  Company Number: 1022556-2010-00006

PATIENT
  Age: 58 Year
  Sex: Male
  Weight: 95.2554 kg

DRUGS (6)
  1. ICY HOT MEDICATED PATCH [Suspect]
     Indication: ANALGESIC THERAPY
     Dosage: 1 PATCH, TOPICAL
     Route: 061
     Dates: start: 20100130
  2. ICY HOT MEDICATED PATCH [Suspect]
     Indication: THERAPEUTIC SKIN CARE TOPICAL
     Dosage: 1 PATCH, TOPICAL
     Route: 061
     Dates: start: 20100130
  3. LAMICTAL [Concomitant]
  4. WELLBUTRIN [Concomitant]
  5. TOPAMAX [Concomitant]
  6. BUSPAR [Concomitant]

REACTIONS (1)
  - DRUG HYPERSENSITIVITY [None]
